FAERS Safety Report 17860399 (Version 1)
Quarter: 2020Q2

REPORT INFORMATION
  Report Type: Not Available
  Country: US (occurrence: US)
  Receive Date: 20200604
  Receipt Date: 20200604
  Transmission Date: 20200714
  Serious: No
  Sender: FDA-Public Use
  Company Number: US-NEUROCRINE BIOSCIENCES INC.-2020NBI01654

PATIENT
  Age: 62 Year
  Sex: Female

DRUGS (1)
  1. INGREZZA [Suspect]
     Active Substance: VALBENAZINE
     Indication: TARDIVE DYSKINESIA
     Route: 048
     Dates: start: 20200501

REACTIONS (4)
  - Sleep disorder [Unknown]
  - Lethargy [Unknown]
  - Listless [Unknown]
  - Speech disorder [Unknown]

NARRATIVE: CASE EVENT DATE: 202005
